FAERS Safety Report 7553703-4 (Version None)
Quarter: 2011Q2

REPORT INFORMATION
  Report Type: 
  Country: None (occurrence: None)
  Receive Date: 20110617
  Receipt Date: 20110609
  Transmission Date: 20111010
  Serious: Yes (Hospitalization)
  Sender: FDA-Public Use
  Company Number: JP-NOVOPROD-329724

PATIENT
  Age: 56 Year
  Sex: Female
  Weight: 73 kg

DRUGS (5)
  1. VICTOZA [Suspect]
     Indication: TYPE 2 DIABETES MELLITUS
     Dosage: 0.9 MG, QD
     Route: 058
  2. NORVASC [Concomitant]
     Dosage: UNK
     Route: 048
  3. PLAVIX [Concomitant]
     Dosage: UNK
     Route: 048
  4. ACTOS [Concomitant]
     Dosage: UNK
     Route: 048
  5. DIOVAN [Concomitant]
     Dosage: UNK
     Route: 048

REACTIONS (1)
  - PANCREATITIS ACUTE [None]
